FAERS Safety Report 12622859 (Version 2)
Quarter: 2016Q3

REPORT INFORMATION
  Report Type: Spontaneous
  Country: AT (occurrence: AT)
  Receive Date: 20160804
  Receipt Date: 20160822
  Transmission Date: 20161109
  Serious: Yes (Death, Other)
  Sender: FDA-Public Use
  Company Number: AT-INCYTE CORPORATION-2016IN004568

PATIENT
  Age: 72 Year
  Sex: Male

DRUGS (4)
  1. VIDAZA [Concomitant]
     Active Substance: AZACITIDINE
     Indication: PRODUCT USED FOR UNKNOWN INDICATION
     Dosage: 15062 MG, UNK
     Route: 058
     Dates: start: 20160624, end: 20160630
  2. JAKAFI [Suspect]
     Active Substance: RUXOLITINIB
     Dosage: 30 MG, QD
     Route: 048
     Dates: end: 20160703
  3. JAKAFI [Suspect]
     Active Substance: RUXOLITINIB
     Indication: MYELOFIBROSIS
     Dosage: 15 MG, BID
     Route: 065
     Dates: start: 20160428
  4. VIDAZA [Concomitant]
     Active Substance: AZACITIDINE
     Indication: MYELOFIBROSIS

REACTIONS (2)
  - Blast cell crisis [Unknown]
  - Cardiac failure [Fatal]

NARRATIVE: CASE EVENT DATE: 20160705
